FAERS Safety Report 7997920-8 (Version None)
Quarter: 2011Q4

REPORT INFORMATION
  Report Type: 
  Country: None (occurrence: None)
  Receive Date: 20111221
  Receipt Date: 20111215
  Transmission Date: 20120403
  Serious: Yes (Other)
  Sender: FDA-Public Use
  Company Number: PHHY2011FR109762

PATIENT
  Age: 80 Year
  Sex: Female
  Weight: 61 kg

DRUGS (11)
  1. CALCIUM CARBONATE [Concomitant]
  2. CHELIDONIUM [Concomitant]
  3. PANTOPRAZOLE [Concomitant]
     Dosage: UNK
     Dates: start: 20110101
  4. PANTOPRAZOLE SODIUM [Concomitant]
     Dates: start: 20010101, end: 20110101
  5. KALIUM BROMATUM [Concomitant]
  6. ZOLEDRONOC ACID [Suspect]
     Route: 042
     Dates: start: 20110401
  7. AMOXICILLIN TRIHYDRATE [Concomitant]
     Dosage: UNK
     Dates: start: 20110101, end: 20111201
  8. BONIVA [Suspect]
     Indication: OSTEOPOROSIS
     Dosage: UNK
     Dates: end: 20110101
  9. LEVOTHYROXINE SODIUM [Concomitant]
  10. CELESTONE [Concomitant]
     Dates: start: 20110101, end: 20111201
  11. IBANDRONATE SODIUM [Suspect]
     Indication: OSTEOPOROSIS
     Dosage: UNK
     Dates: start: 20030101, end: 20100101

REACTIONS (2)
  - CYST [None]
  - TOOTHACHE [None]
